FAERS Safety Report 17768594 (Version 1)
Quarter: 2020Q2

REPORT INFORMATION
  Report Type: Spontaneous
  Country: DE (occurrence: DE)
  Receive Date: 20200512
  Receipt Date: 20200512
  Transmission Date: 20200714
  Serious: Yes (Life-Threatening, Hospitalization, Other)
  Sender: FDA-Public Use
  Company Number: DE-DRREDDYS-USA/GER/20/0122787

PATIENT
  Age: 89 Year
  Sex: Female

DRUGS (11)
  1. APIXABAN [Concomitant]
     Active Substance: APIXABAN
     Indication: PRODUCT USED FOR UNKNOWN INDICATION
     Dosage: 1-0-1, ONE DOSE IN THE MORNING OR AT BREAKFAST, NONE AT MIDDAY, AND ONCE AT DINNER OR BEFORE GOING T
     Route: 065
  2. RAMIPRIL. [Concomitant]
     Active Substance: RAMIPRIL
     Indication: PRODUCT USED FOR UNKNOWN INDICATION
     Dosage: 1-0-1, ONE DOSE IN THE MORNING OR AT BREAKFAST, NONE AT MIDDAY, AND ONCE AT DINNER OR BEFORE GOING T
     Route: 065
  3. SIMVASTATIN. [Concomitant]
     Active Substance: SIMVASTATIN
     Indication: PRODUCT USED FOR UNKNOWN INDICATION
     Dosage: 0-0-1, AT NIGHT
     Route: 065
  4. ALLOPURINOL. [Suspect]
     Active Substance: ALLOPURINOL
     Indication: HYPERURICAEMIA
  5. ACETYLSALICYLIC ACID [Concomitant]
     Active Substance: ASPIRIN
     Indication: PRODUCT USED FOR UNKNOWN INDICATION
     Dosage: 0-1-0, IN AFTERNOON
     Route: 054
  6. BETAHISTIN [Concomitant]
     Active Substance: BETAHISTINE
     Indication: PRODUCT USED FOR UNKNOWN INDICATION
     Dosage: 1-0-0, TAKE IN MORNING
     Route: 065
  7. ALLOPURINOL. [Suspect]
     Active Substance: ALLOPURINOL
     Indication: GOUT
     Route: 065
  8. BISOPROLOL [Concomitant]
     Active Substance: BISOPROLOL
     Indication: PRODUCT USED FOR UNKNOWN INDICATION
     Dosage: 1-0-0, TAKE IN MORNING
     Route: 065
  9. RANOLAZINE. [Concomitant]
     Active Substance: RANOLAZINE
     Indication: PRODUCT USED FOR UNKNOWN INDICATION
     Dosage: 1-0-1, ONE DOSE IN THE MORNING OR AT BREAKFAST, NONE AT MIDDAY, AND ONCE AT DINNER OR BEFORE GOING T
     Route: 065
  10. TORASEMIDE [Concomitant]
     Active Substance: TORSEMIDE
     Indication: PRODUCT USED FOR UNKNOWN INDICATION
     Dosage: 1-0-0, TAKE IN MORNING
     Route: 065
  11. AMLODIPINE [Concomitant]
     Active Substance: AMLODIPINE BESYLATE
     Indication: PRODUCT USED FOR UNKNOWN INDICATION
     Dosage: 1-0-1, ONE DOSE IN THE MORNING OR AT BREAKFAST, NONE AT MIDDAY, AND ONCE AT DINNER OR BEFORE GOING T
     Route: 065

REACTIONS (7)
  - Stevens-Johnson syndrome [Unknown]
  - Pneumonia [Unknown]
  - Pulmonary congestion [Unknown]
  - Cardiomegaly [Unknown]
  - Depressed level of consciousness [Unknown]
  - Pleural effusion [Unknown]
  - General physical health deterioration [Unknown]
